FAERS Safety Report 24565040 (Version 1)
Quarter: 2024Q4

REPORT INFORMATION
  Report Type: Spontaneous
  Country: US (occurrence: None)
  Receive Date: 20241029
  Receipt Date: 20241029
  Transmission Date: 20250115
  Serious: Yes (Other)
  Sender: Public
  Company Number: None

PATIENT
  Age: 58 Year
  Sex: Female
  Weight: 62.55 kg

DRUGS (1)
  1. HIZENTRA [Suspect]
     Active Substance: HUMAN IMMUNOGLOBULIN G
     Indication: Immunodeficiency
     Dosage: FREQUENCY : WEEKLY;?
     Route: 058
     Dates: start: 20241029, end: 20241029

REACTIONS (2)
  - Infusion site pruritus [None]
  - Infusion site rash [None]

NARRATIVE: CASE EVENT DATE: 20241029
